FAERS Safety Report 21182881 (Version 4)
Quarter: 2022Q3

REPORT INFORMATION
  Report Type: Report from Study
  Country: CO (occurrence: CO)
  Receive Date: 20220808
  Receipt Date: 20220926
  Transmission Date: 20221027
  Serious: Yes (Death, Hospitalization, Other)
  Sender: FDA-Public Use
  Company Number: CO-NOVARTISPH-NVSC2022CO178102

PATIENT
  Sex: Male

DRUGS (1)
  1. ELTROMBOPAG OLAMINE [Suspect]
     Active Substance: ELTROMBOPAG OLAMINE
     Indication: Aplastic anaemia
     Dosage: 100 MG, QD
     Route: 048

REACTIONS (6)
  - Death [Fatal]
  - Malaise [Unknown]
  - Blood glucose decreased [Unknown]
  - Diarrhoea [Recovered/Resolved]
  - General physical health deterioration [Unknown]
  - Product distribution issue [Unknown]
